FAERS Safety Report 19484342 (Version 6)
Quarter: 2022Q1

REPORT INFORMATION
  Report Type: Spontaneous
  Country: DE (occurrence: DE)
  Receive Date: 20210702
  Receipt Date: 20220331
  Transmission Date: 20220423
  Serious: Yes (Hospitalization)
  Sender: FDA-Public Use
  Company Number: DE-BIOGEN-2020BI00887762

PATIENT
  Sex: Female

DRUGS (4)
  1. SPINRAZA [Suspect]
     Active Substance: NUSINERSEN
     Indication: Spinal muscular atrophy
     Dosage: 12 MG/5 ML
     Route: 037
     Dates: start: 20180227, end: 20190918
  2. SPINRAZA [Suspect]
     Active Substance: NUSINERSEN
     Dosage: 12 MG/5 ML
     Route: 037
     Dates: start: 20200902
  3. SPINRAZA [Suspect]
     Active Substance: NUSINERSEN
     Dosage: RESUMED (30 MONTHS AFTER INITIATION OF THERAPY) NEW LOADING DOSE
     Route: 065
  4. PANTOPRAZOLE [Concomitant]
     Active Substance: PANTOPRAZOLE
     Indication: Oesophagitis
     Route: 065

REACTIONS (2)
  - Caesarean section [Recovered/Resolved]
  - Maternal exposure during pregnancy [Recovered/Resolved]

NARRATIVE: CASE EVENT DATE: 20200713
